FAERS Safety Report 8617393-1 (Version None)
Quarter: 2012Q3

REPORT INFORMATION
  Report Type: 
  Country: None (occurrence: None)
  Receive Date: 20120823
  Receipt Date: 20120815
  Transmission Date: 20120928
  Serious: Yes (Hospitalization, Disabling, Other)
  Sender: FDA-Public Use
  Company Number: US-009507513-1206USA04945

PATIENT

DRUGS (1)
  1. FOSAMAX [Suspect]
     Dosage: UNK
     Route: 048
     Dates: start: 19950101

REACTIONS (29)
  - RENAL FAILURE [None]
  - HYPOTHYROIDISM [None]
  - INTRAMEDULLARY ROD INSERTION [None]
  - OSTEOPOROSIS [None]
  - TONSILLECTOMY [None]
  - APPENDICECTOMY [None]
  - RECTAL HAEMORRHAGE [None]
  - CORONARY ARTERY DISEASE [None]
  - RADICULOPATHY [None]
  - FEMUR FRACTURE [None]
  - IMPAIRED HEALING [None]
  - LIMB OPERATION [None]
  - POLYP [None]
  - LOW TURNOVER OSTEOPATHY [None]
  - DIVERTICULUM [None]
  - DEPRESSION [None]
  - HYPERTENSION [None]
  - ARTHRITIS [None]
  - GASTROOESOPHAGEAL REFLUX DISEASE [None]
  - KNEE ARTHROPLASTY [None]
  - HYSTERECTOMY [None]
  - SPINAL DEFORMITY [None]
  - DRUG INEFFECTIVE [None]
  - CHOLECYSTECTOMY [None]
  - DIARRHOEA [None]
  - STRESS FRACTURE [None]
  - HAEMORRHAGE [None]
  - SURGERY [None]
  - HAEMORRHOIDS [None]
